FAERS Safety Report 10731202 (Version 1)
Quarter: 2015Q1

REPORT INFORMATION
  Report Type: Spontaneous
  Country: TR (occurrence: TR)
  Receive Date: 20150122
  Receipt Date: 20150122
  Transmission Date: 20150721
  Serious: Yes (Other)
  Sender: FDA-Public Use
  Company Number: TR-MYLANLABS-2015M1001070

PATIENT

DRUGS (2)
  1. ISOTRETINOIN [Suspect]
     Active Substance: ISOTRETINOIN
     Indication: ACNE FULMINANS
     Dosage: RECEIVED AT 20MG/DAY DURING FIRST 3 MONTHS AND THEN INCREASED TO 40MG/DAY
     Route: 065
  2. ISOTRETINOIN [Suspect]
     Active Substance: ISOTRETINOIN
     Dosage: RECEIVED AT 40MG/DAY DURING LAST 3 MONTHS
     Route: 065

REACTIONS (2)
  - Demyelinating polyneuropathy [Recovered/Resolved]
  - Sacroiliitis [Recovered/Resolved]
